FAERS Safety Report 8600414-X (Version None)
Quarter: 2012Q3

REPORT INFORMATION
  Report Type: 
  Country: None (occurrence: None)
  Receive Date: 20120802
  Receipt Date: 20120723
  Transmission Date: 20120928
  Serious: Yes (Death)
  Sender: FDA-Public Use
  Company Number: GGEL20120700882

PATIENT
  Age: 26 Year
  Sex: Female

DRUGS (7)
  1. THIORIDAZINE HCL [Concomitant]
  2. THYROXINE (THYROXINE) [Concomitant]
  3. HYDROCORTONE [Concomitant]
  4. VIGABATRIN (VIGABATRIN) [Concomitant]
  5. LAMOTRIGINE [Suspect]
     Indication: CONVULSION
     Dosage: 50 MILLIGRAM, 1 IN 1 D
  6. CARBAMAZEPINE [Concomitant]
  7. ACETAZOLAMIDE [Concomitant]

REACTIONS (12)
  - ANAEMIA [None]
  - CONFUSIONAL STATE [None]
  - RESPIRATORY ARREST [None]
  - HEADACHE [None]
  - SOMNOLENCE [None]
  - PYREXIA [None]
  - DISSEMINATED INTRAVASCULAR COAGULATION [None]
  - OROPHARYNGEAL PAIN [None]
  - RENAL FAILURE [None]
  - BLOOD CREATINE PHOSPHOKINASE INCREASED [None]
  - INFLUENZA LIKE ILLNESS [None]
  - LEUKOCYTOSIS [None]
